FAERS Safety Report 10584726 (Version 1)
Quarter: 2014Q4

REPORT INFORMATION
  Report Type: Spontaneous
  Country: US (occurrence: US)
  Receive Date: 20141114
  Receipt Date: 20141114
  Transmission Date: 20150529
  Serious: Yes (Hospitalization)
  Sender: FDA-Public Use
  Company Number: US-ABBVIE-14P-163-1306577-00

PATIENT
  Age: 47 Year

DRUGS (1)
  1. ANDROGEL [Suspect]
     Active Substance: TESTOSTERONE
     Indication: BLOOD TESTOSTERONE DECREASED
     Route: 061

REACTIONS (9)
  - Pain [Unknown]
  - Lung disorder [Unknown]
  - Impaired work ability [Unknown]
  - Pulmonary embolism [Unknown]
  - Economic problem [Unknown]
  - Anhedonia [Unknown]
  - Fear [Unknown]
  - Social problem [Unknown]
  - Anxiety [Unknown]

NARRATIVE: CASE EVENT DATE: 201009
